FAERS Safety Report 7507176-8 (Version None)
Quarter: 2011Q2

REPORT INFORMATION
  Report Type: 
  Country: None (occurrence: None)
  Receive Date: 20110526
  Receipt Date: 20110523
  Transmission Date: 20111010
  Serious: Yes (Other)
  Sender: FDA-Public Use
  Company Number: CH-ABBOTT-11P-151-0705617-00

PATIENT
  Age: 43 Year
  Sex: Male

DRUGS (9)
  1. NORVIR [Suspect]
     Indication: HIV INFECTION
     Dates: start: 20060201, end: 20110102
  2. BUPRENORPHINE [Concomitant]
     Indication: DRUG DEPENDENCE
     Dates: start: 20050513
  3. RITALIN [Concomitant]
     Indication: ATTENTION DEFICIT/HYPERACTIVITY DISORDER
     Route: 048
     Dates: start: 20080331, end: 20110103
  4. TRUVADA [Suspect]
     Indication: HIV INFECTION
     Dosage: 245/200
     Dates: start: 20060201, end: 20110103
  5. CANDESARTAN CILEXETIL [Concomitant]
     Indication: HYPERTENSION
     Dates: start: 20091106, end: 20110103
  6. EFFEXOR [Concomitant]
     Indication: PRODUCT USED FOR UNKNOWN INDICATION
  7. MARCUMAR [Concomitant]
     Indication: PRODUCT USED FOR UNKNOWN INDICATION
     Route: 048
     Dates: start: 20090106, end: 20110103
  8. NSAR [Concomitant]
     Indication: FLANK PAIN
  9. REYATAZ [Suspect]
     Indication: HIV INFECTION
     Dates: start: 20060201, end: 20110103

REACTIONS (8)
  - CHILLS [None]
  - RENAL FAILURE ACUTE [None]
  - HAEMATURIA [None]
  - PROTEINURIA [None]
  - ANURIA [None]
  - CHROMATURIA [None]
  - PYREXIA [None]
  - RENAL ATROPHY [None]
